FAERS Safety Report 4562405-8 (Version None)
Quarter: 2005Q1

REPORT INFORMATION
  Report Type: 
  Country: None (occurrence: None)
  Receive Date: 20050127
  Receipt Date: 20040831
  Transmission Date: 20050727
  Serious: No
  Sender: FDA-Public Use
  Company Number: US-BRISTOL-MYERS SQUIBB COMPANY-12689014

PATIENT
  Sex: Female

DRUGS (1)
  1. KENALOG [Suspect]
     Route: 051
     Dates: start: 20040601

REACTIONS (1)
  - MUSCLE ATROPHY [None]
